FAERS Safety Report 5816651-3 (Version None)
Quarter: 2008Q3

REPORT INFORMATION
  Report Type: 
  Country: None (occurrence: None)
  Receive Date: 20080721
  Receipt Date: 20080710
  Transmission Date: 20090109
  Serious: Yes (Other)
  Sender: FDA-Public Use
  Company Number: CA-PFIZER INC-2008057252

PATIENT
  Age: 58 Year
  Sex: Female
  Weight: 108 kg

DRUGS (1)
  1. SU-011,248 [Suspect]
     Indication: MESOTHELIOMA
     Route: 048
     Dates: start: 20080411, end: 20080426

REACTIONS (1)
  - TINNITUS [None]
